FAERS Safety Report 24203319 (Version 2)
Quarter: 2025Q2

REPORT INFORMATION
  Report Type: Spontaneous
  Country: CA (occurrence: CA)
  Receive Date: 20240813
  Receipt Date: 20250410
  Transmission Date: 20250717
  Serious: Yes (Other)
  Sender: HIKMA
  Company Number: CA-HIKMA PHARMACEUTICALS USA INC.-CA-H14001-24-06345

PATIENT

DRUGS (44)
  1. ALUNBRIG [Suspect]
     Active Substance: BRIGATINIB
     Indication: Disease progression
     Route: 065
  2. ALUNBRIG [Suspect]
     Active Substance: BRIGATINIB
     Indication: Pancreatic carcinoma metastatic
  3. ALUNBRIG [Suspect]
     Active Substance: BRIGATINIB
     Indication: Targeted cancer therapy
  4. AMILOMER [Suspect]
     Active Substance: AMILOMER
     Indication: Pancreatic carcinoma metastatic
     Route: 065
  5. BEVACIZUMAB [Suspect]
     Active Substance: BEVACIZUMAB
     Indication: Pancreatic carcinoma metastatic
     Route: 065
  6. CAPECITABINE [Suspect]
     Active Substance: CAPECITABINE
     Indication: Pancreatic carcinoma metastatic
     Route: 065
  7. CAPECITABINE [Suspect]
     Active Substance: CAPECITABINE
     Indication: Brain cancer metastatic
  8. CAPECITABINE [Suspect]
     Active Substance: CAPECITABINE
     Indication: Pancreatic carcinoma metastatic
     Route: 065
  9. CISPLATIN [Suspect]
     Active Substance: CISPLATIN
     Route: 042
  10. CISPLATIN [Suspect]
     Active Substance: CISPLATIN
     Indication: Pancreatic carcinoma metastatic
     Route: 065
  11. DEMCIZUMAB [Suspect]
     Active Substance: DEMCIZUMAB
     Indication: Pancreatic carcinoma metastatic
     Route: 065
  12. DEMCIZUMAB [Suspect]
     Active Substance: DEMCIZUMAB
     Indication: Metastases to liver
  13. DOCETAXEL [Suspect]
     Active Substance: DOCETAXEL
     Indication: Pancreatic carcinoma metastatic
     Route: 065
  14. ENTRECTINIB [Suspect]
     Active Substance: ENTRECTINIB
     Indication: Product used for unknown indication
     Route: 065
  15. ETHIODIZED OIL [Suspect]
     Active Substance: ETHIODIZED OIL
     Indication: Pancreatic carcinoma metastatic
     Route: 065
  16. FLUOROURACIL [Suspect]
     Active Substance: FLUOROURACIL
     Indication: Pancreatic carcinoma metastatic
     Route: 065
  17. GEMCITABINE [Suspect]
     Active Substance: GEMCITABINE
     Indication: Pancreatic carcinoma metastatic
     Route: 065
  18. GEMCITABINE [Suspect]
     Active Substance: GEMCITABINE
     Indication: Metastases to liver
  19. KEYTRUDA [Suspect]
     Active Substance: PEMBROLIZUMAB
     Indication: Pancreatic carcinoma metastatic
     Route: 065
  20. KEYTRUDA [Suspect]
     Active Substance: PEMBROLIZUMAB
     Indication: Brain cancer metastatic
  21. LORBRENA [Suspect]
     Active Substance: LORLATINIB
     Indication: Pulmonary mass
     Route: 065
  22. LORBRENA [Suspect]
     Active Substance: LORLATINIB
     Indication: Neoplasm
  23. MITOMYCIN [Suspect]
     Active Substance: MITOMYCIN
     Route: 042
  24. MITOMYCIN [Suspect]
     Active Substance: MITOMYCIN
     Indication: Pancreatic carcinoma metastatic
     Route: 065
  25. OSIMERTINIB [Suspect]
     Active Substance: OSIMERTINIB
     Indication: Pancreatic carcinoma metastatic
     Route: 065
  26. OXALIPLATIN [Suspect]
     Active Substance: OXALIPLATIN
     Indication: Pancreatic carcinoma metastatic
     Route: 065
  27. PACLITAXEL [Suspect]
     Active Substance: PACLITAXEL
     Indication: Pancreatic carcinoma metastatic
     Route: 065
  28. PACLITAXEL [Suspect]
     Active Substance: PACLITAXEL
     Indication: Pancreatic carcinoma metastatic
     Route: 042
  29. PACLITAXEL [Suspect]
     Active Substance: PACLITAXEL
     Indication: Product used for unknown indication
  30. PACLITAXEL [Suspect]
     Active Substance: PACLITAXEL
     Indication: Pancreatic carcinoma metastatic
     Route: 065
  31. PACLITAXEL [Suspect]
     Active Substance: PACLITAXEL
     Indication: Metastases to liver
  32. PEMBROLIZUMAB [Suspect]
     Active Substance: PEMBROLIZUMAB
     Indication: Brain cancer metastatic
     Route: 065
  33. PEMBROLIZUMAB [Suspect]
     Active Substance: PEMBROLIZUMAB
     Indication: Pancreatic carcinoma metastatic
  34. PEMETREXED [Suspect]
     Active Substance: PEMETREXED
     Route: 042
  35. PEMETREXED [Suspect]
     Active Substance: PEMETREXED
     Indication: Pancreatic carcinoma metastatic
     Route: 065
  36. PERTUZUMAB [Suspect]
     Active Substance: PERTUZUMAB
     Indication: Pancreatic carcinoma metastatic
     Route: 065
  37. TRASTUZUMAB [Suspect]
     Active Substance: TRASTUZUMAB
     Indication: Pancreatic carcinoma metastatic
     Route: 065
  38. TRASTUZUMAB DERUXTECAN [Suspect]
     Active Substance: TRASTUZUMAB DERUXTECAN
     Indication: Pancreatic carcinoma metastatic
     Route: 042
  39. TRASTUZUMAB DERUXTECAN [Suspect]
     Active Substance: TRASTUZUMAB DERUXTECAN
     Indication: Pancreatic carcinoma metastatic
     Route: 065
  40. YTTRIUM CHLORIDE Y-90 [Suspect]
     Active Substance: YTTRIUM CHLORIDE Y-90
     Indication: Radiotherapy
     Route: 065
  41. ETHIODIZED OIL [Concomitant]
     Active Substance: ETHIODIZED OIL
     Indication: Pancreatic carcinoma metastatic
     Route: 065
  42. FLUOROURACIL SODIUM [Concomitant]
     Active Substance: FLUOROURACIL SODIUM
     Indication: Pancreatic carcinoma metastatic
     Route: 065
  43. LEUCOVORIN [Concomitant]
     Active Substance: LEUCOVORIN\LEUCOVORIN CALCIUM
     Indication: Product used for unknown indication
     Route: 065
  44. IRINOTECAN [Concomitant]
     Active Substance: IRINOTECAN
     Route: 065

REACTIONS (7)
  - Pancreatic carcinoma metastatic [Unknown]
  - Disease progression [Unknown]
  - Drug ineffective [Unknown]
  - Metastases to central nervous system [Unknown]
  - Metastases to liver [Unknown]
  - Off label use [Unknown]
  - Pancytopenia [Unknown]
